FAERS Safety Report 5089337-3 (Version None)
Quarter: 2006Q3

REPORT INFORMATION
  Report Type: 
  Country: None (occurrence: None)
  Receive Date: 20060825
  Receipt Date: 20060815
  Transmission Date: 20061208
  Serious: Yes (Hospitalization)
  Sender: FDA-Public Use
  Company Number: GB-ABBOTT-06P-167-0340775-00

PATIENT
  Age: 33 Year
  Sex: Male

DRUGS (8)
  1. CYCLOSPORINE [Suspect]
     Indication: PSORIASIS
     Route: 065
     Dates: start: 20040101, end: 20040601
  2. CYCLOSPORINE [Suspect]
     Route: 065
     Dates: start: 20040601
  3. ACITRETIN [Suspect]
     Indication: PSORIASIS
     Route: 065
     Dates: start: 20021101
  4. ACITRETIN [Suspect]
     Dosage: INCREASED TO 60 MG DAILY OVER 12 MONTHS
     Route: 065
  5. BENDROFLUMETHIAZIDE [Concomitant]
     Indication: HYPERTENSION
     Route: 065
  6. FUMARIC ACID [Concomitant]
     Indication: PSORIASIS
     Route: 065
  7. NONSTEROIDAL ANTIINFLAMMATORY DRUGS [Concomitant]
     Indication: BACK PAIN
     Route: 065
  8. NONSTEROIDAL ANTIINFLAMMATORY DRUGS [Concomitant]
     Indication: PAIN IN EXTREMITY

REACTIONS (4)
  - BLOOD PRESSURE INCREASED [None]
  - BONE SCAN ABNORMAL [None]
  - EXTRASKELETAL OSSIFICATION [None]
  - MYOPATHY [None]
